FAERS Safety Report 8419105-3 (Version None)
Quarter: 2012Q2

REPORT INFORMATION
  Report Type: 
  Country: None (occurrence: None)
  Receive Date: 20120607
  Receipt Date: 20120601
  Transmission Date: 20120825
  Serious: Yes (Hospitalization)
  Sender: FDA-Public Use
  Company Number: IT-ASTRAZENECA-2011SE44713

PATIENT
  Age: 72 Year
  Sex: Male

DRUGS (7)
  1. KEPPRA [Suspect]
     Dosage: 1000 MG DAILY, 250 MG 60 FILM COATED TABLETS ORAL USE
     Route: 048
  2. CLONAZEPAM [Suspect]
     Indication: EPILEPSY
     Dosage: 2.5 MG / ML ORAL DROPS, SOLUTION  FLACON 10ML AS REQUIRED
     Route: 048
     Dates: start: 20110101
  3. KEPPRA [Suspect]
     Dosage: 250 MG 60 FILM COATED TABLETS TO 500 MG 60 FILM COATED TABLETSORAL USE
     Route: 048
     Dates: start: 20120529
  4. PLAVIX [Concomitant]
     Route: 048
  5. OMEPRAZOLE [Suspect]
     Indication: PROPHYLAXIS
     Route: 048
     Dates: start: 20110101, end: 20110726
  6. RAMIPRIL [Concomitant]
  7. KEPPRA [Suspect]
     Indication: EPILEPSY
     Dosage: 2000 MG DAILY, 500 MG 60 FILM COATED TABLETS ORAL USE
     Route: 048
     Dates: start: 20110101, end: 20110624

REACTIONS (9)
  - MUCOSAL INFLAMMATION [None]
  - PYREXIA [None]
  - ALANINE AMINOTRANSFERASE INCREASED [None]
  - NEUTROPHILIA [None]
  - RASH MORBILLIFORM [None]
  - DERMATITIS ALLERGIC [None]
  - HYPERTRANSAMINASAEMIA [None]
  - ERYTHEMA [None]
  - CONJUNCTIVITIS [None]
